FAERS Safety Report 13698144 (Version 1)
Quarter: 2017Q2

REPORT INFORMATION
  Report Type: Spontaneous
  Country: JP (occurrence: JP)
  Receive Date: 20170628
  Receipt Date: 20170628
  Transmission Date: 20170830
  Serious: Yes (Other)
  Sender: FDA-Public Use
  Company Number: JP-PFIZER INC-2017214964

PATIENT
  Age: 72 Year
  Sex: Male
  Weight: 67 kg

DRUGS (13)
  1. NEUROTROPIN /06251301/ [Concomitant]
     Active Substance: ORYCTOLAGUS CUNICULUS SKIN
     Dosage: UNK
     Route: 048
     Dates: start: 20170117
  2. REZALTAS [Concomitant]
     Active Substance: AZELNIDIPINE\OLMESARTAN MEDOXOMIL
     Dosage: 1 DF, UNK
     Route: 048
     Dates: start: 20170303
  3. LYRICA [Suspect]
     Active Substance: PREGABALIN
     Dosage: 75 MG, 2X/DAY
     Route: 048
     Dates: start: 20160720, end: 20170116
  4. LYRICA [Suspect]
     Active Substance: PREGABALIN
     Dosage: UNK
     Route: 048
     Dates: start: 20170123, end: 20170317
  5. NATRIX [Concomitant]
     Active Substance: INDAPAMIDE
     Dosage: 0.5 MG, UNK
     Route: 048
     Dates: start: 20170303
  6. LYRICA [Suspect]
     Active Substance: PREGABALIN
     Dosage: 225 MG, DAILY
     Route: 048
     Dates: start: 20170117
  7. LYRICA [Suspect]
     Active Substance: PREGABALIN
     Dosage: 150 MG, 2X/DAY
     Route: 048
     Dates: start: 20170318, end: 20170322
  8. NEUROTROPIN /06251301/ [Concomitant]
     Active Substance: ORYCTOLAGUS CUNICULUS SKIN
     Dosage: UNK
     Route: 048
     Dates: start: 20160511
  9. NEUROTROPIN /06251301/ [Concomitant]
     Active Substance: ORYCTOLAGUS CUNICULUS SKIN
     Dosage: UNK
     Route: 048
     Dates: start: 20160828
  10. ALLEGRA [Concomitant]
     Active Substance: FEXOFENADINE HYDROCHLORIDE
  11. LYRICA [Suspect]
     Active Substance: PREGABALIN
     Indication: POST HERPETIC NEURALGIA
     Dosage: 75 MG, 1X/DAY
     Route: 048
     Dates: start: 20160518, end: 20160719
  12. NEUROTROPIN /06251301/ [Concomitant]
     Active Substance: ORYCTOLAGUS CUNICULUS SKIN
     Dosage: UNK
     Route: 048
     Dates: start: 20160720
  13. PREDONINE [Concomitant]
     Active Substance: PREDNISOLONE
     Dosage: 5 MG, UNK
     Route: 048
     Dates: start: 20160720

REACTIONS (9)
  - Contusion [Recovered/Resolved]
  - Injury [Recovered/Resolved]
  - Dizziness [Unknown]
  - Traumatic haemorrhage [Unknown]
  - Intentional product use issue [Unknown]
  - Feeling abnormal [Unknown]
  - Loss of consciousness [Recovered/Resolved]
  - Somnolence [Unknown]
  - Fall [Recovered/Resolved]

NARRATIVE: CASE EVENT DATE: 20170118
